FAERS Safety Report 17655832 (Version 1)
Quarter: 2020Q2

REPORT INFORMATION
  Report Type: Spontaneous
  Country: BE (occurrence: BE)
  Receive Date: 20200410
  Receipt Date: 20200410
  Transmission Date: 20200713
  Serious: Yes (Other)
  Sender: FDA-Public Use
  Company Number: BE-BAXTER-2020BAX007914

PATIENT
  Age: 74 Year
  Sex: Female
  Weight: 65 kg

DRUGS (4)
  1. DOXIL [Suspect]
     Active Substance: DOXORUBICIN HYDROCHLORIDE
     Indication: SMALL CELL LUNG CANCER
     Dosage: 2 ND- IINE TREATMENT WITH 10 CYCLES OF LURBINECTEDINE + DOXORUBICINE (ATLANTIS TRIAL)
     Route: 065
     Dates: start: 201704, end: 201710
  2. CELLTOP 50 MG - CAPSULES MOLLES [Suspect]
     Active Substance: ETOPOSIDE
     Indication: SMALL CELL LUNG CANCER
     Dosage: 6 CYCLES OF 1ST-LINE CHEMOTHERAPY
     Route: 065
     Dates: start: 201607, end: 201612
  3. CARBOPLATIN. [Suspect]
     Active Substance: CARBOPLATIN
     Indication: SMALL CELL LUNG CANCER
     Dosage: 6 CYCLES OF 1ST-LINE CHEMOTHERAPY
     Route: 065
     Dates: start: 201607, end: 201612
  4. LURBINECTEDIN [Suspect]
     Active Substance: LURBINECTEDIN
     Indication: SMALL CELL LUNG CANCER
     Dosage: 2 ND- IINE TREATMENT WITH 10 CYCLES OF LURBINECTEDINE + DOXORUBICINE (ATLANTIS TRIAL)
     Route: 065
     Dates: start: 201704, end: 201710

REACTIONS (2)
  - Disease progression [Unknown]
  - Therapy partial responder [Unknown]

NARRATIVE: CASE EVENT DATE: 2017
